FAERS Safety Report 8143424-1 (Version None)
Quarter: 2012Q1

REPORT INFORMATION
  Report Type: 
  Country: None (occurrence: None)
  Receive Date: 20120217
  Receipt Date: 20120216
  Transmission Date: 20120608
  Serious: Yes (Other)
  Sender: FDA-Public Use
  Company Number: CH-AMGEN-CHESP2012004700

PATIENT
  Age: 45 Year
  Sex: Female
  Weight: 65 kg

DRUGS (4)
  1. DOXORUBICIN HCL [Concomitant]
     Indication: BREAST CANCER
     Dosage: UNK
     Route: 042
     Dates: start: 20120104
  2. NEULASTA [Suspect]
     Indication: CHEMOTHERAPY
     Dosage: 6 MG, ONE TIME DOSE
     Route: 058
     Dates: start: 20120105, end: 20120105
  3. CYCLOPHOSPHAMIDE [Concomitant]
     Indication: BREAST CANCER
     Dosage: UNK
     Route: 042
     Dates: start: 20120104
  4. TAXOTERE [Concomitant]
     Indication: BREAST CANCER
     Dosage: 131 UNK, UNK
     Route: 042
     Dates: start: 20120104

REACTIONS (3)
  - ANGIOEDEMA [None]
  - LYMPH NODE PAIN [None]
  - LYMPHADENOPATHY [None]
